FAERS Safety Report 10369366 (Version 1)
Quarter: 2014Q1

REPORT INFORMATION
  Report Type: Spontaneous
  Country: US (occurrence: None)
  Receive Date: 20140306
  Receipt Date: 20140306
  Transmission Date: 20141002
  Serious: Yes (Hospitalization)
  Sender: FDA-Public Use
  Company Number: 163-21880-13080309

PATIENT
  Age: 73 Year
  Sex: Male
  Weight: 102.5 kg

DRUGS (15)
  1. REVLIMID (LENALIDOMIDE) (CAPSULES) [Suspect]
     Indication: PLASMA CELL MYELOMA
     Route: 048
     Dates: start: 20120925
  2. OXYCODONE *OXYCODONE) [Concomitant]
  3. ETODOLAC (ETODOLAC) [Concomitant]
  4. GLUTAMINE LEVOGLUTAMIDE) [Concomitant]
  5. TUMS (CALCIUM CARBONATE) [Concomitant]
  6. OMEPRAZOLE (OMEPRAZOLE) [Concomitant]
  7. PRAMIPEXOLE (PRAMIPEXOLE) [Concomitant]
  8. SILDENAFIL (SILFENAFL) [Concomitant]
  9. SIMVASTATIN (SIMVASTATIN) [Concomitant]
  10. VITAMIN B 12 (VITAMIN B 12) [Concomitant]
  11. ZOMETA (ZOLRFTONIC ACID) [Concomitant]
  12. ASPIRIN (ACETYLSALICYLIC ACID) [Concomitant]
  13. ATENOLOL [Concomitant]
  14. CALCIUM CARBONATE [Concomitant]
  15. CYANOCOBALAMIN [Concomitant]

REACTIONS (1)
  - Pulmonary embolism [None]
